FAERS Safety Report 4376568-0 (Version None)
Quarter: 2004Q2

REPORT INFORMATION
  Report Type: 
  Country: None (occurrence: None)
  Receive Date: 20040614
  Receipt Date: 20040604
  Transmission Date: 20050107
  Serious: Yes (Other)
  Sender: FDA-Public Use
  Company Number: GB-JNJFOC-20040601219

PATIENT
  Age: 72 Year
  Sex: Female
  Weight: 84 kg

DRUGS (10)
  1. REMICADE [Suspect]
     Indication: RHEUMATOID ARTHRITIS
     Route: 042
  2. METHOTREXATE [Interacting]
     Indication: RHEUMATOID ARTHRITIS
     Route: 049
     Dates: start: 20030201, end: 20031201
  3. LEFLUNOMIDE [Concomitant]
     Indication: RHEUMATOID ARTHRITIS
     Route: 049
     Dates: start: 20010104, end: 20011221
  4. PREDNISOLONE [Concomitant]
     Indication: RHEUMATOID ARTHRITIS
     Route: 049
  5. NABUMETONE [Concomitant]
     Indication: RHEUMATOID ARTHRITIS
     Route: 049
  6. PIOGLITAZONE HCL [Concomitant]
     Route: 065
  7. GLICLAZIDE [Concomitant]
     Route: 049
  8. DIHYDROCODEINE [Concomitant]
     Route: 065
  9. TEMAZEPAM [Concomitant]
     Route: 065
  10. ACETAMINOPHEN [Concomitant]
     Route: 065

REACTIONS (2)
  - DRUG INTERACTION [None]
  - WHITE BLOOD CELL COUNT DECREASED [None]
